FAERS Safety Report 6573082-9 (Version None)
Quarter: 2010Q1

REPORT INFORMATION
  Report Type: 
  Country: None (occurrence: None)
  Receive Date: 20100208
  Receipt Date: 20100129
  Transmission Date: 20100710
  Serious: Yes (Hospitalization)
  Sender: FDA-Public Use
  Company Number: US-ELI_LILLY_AND_COMPANY-US201002000219

PATIENT
  Sex: Male
  Weight: 54.4 kg

DRUGS (2)
  1. FLUOXETINE HYDROCHLORIDE [Suspect]
     Indication: MAJOR DEPRESSION
     Dosage: 40 MG, DAILY (1/D)
     Route: 048
     Dates: start: 20091120, end: 20100119
  2. SERTRALINE HCL [Concomitant]
     Indication: DEPRESSION
     Dates: start: 20100120

REACTIONS (1)
  - AFFECT LABILITY [None]
